FAERS Safety Report 8956839 (Version 1)
Quarter: 2012Q4

REPORT INFORMATION
  Report Type: 
  Country: KZ (occurrence: KZ)
  Receive Date: 20121211
  Receipt Date: 20121211
  Transmission Date: 20130627
  Serious: Yes (Life-Threatening, Hospitalization)
  Sender: FDA-Public Use
  Company Number: PHHY2012KZ113515

PATIENT
  Age: 45 Year
  Sex: Male

DRUGS (3)
  1. SANDIMMUN / NEORAL/ OL 27-400/ OLO 400 [Suspect]
     Indication: TRANSPLANT REJECTION
     Dosage: 250 mg, per day
     Dates: start: 20120527
  2. PREDNISOLONE SANDOZ [Suspect]
     Dosage: 5 mg, UNK
  3. CELLCEPT [Suspect]
     Indication: TRANSPLANT REJECTION
     Dosage: 2000 mg, UNK

REACTIONS (2)
  - Renal failure chronic [Unknown]
  - Kidney transplant rejection [Not Recovered/Not Resolved]
